FAERS Safety Report 19141930 (Version 5)
Quarter: 2022Q1

REPORT INFORMATION
  Report Type: Spontaneous
  Country: CA (occurrence: CA)
  Receive Date: 20210415
  Receipt Date: 20220315
  Transmission Date: 20220423
  Serious: Yes (Death, Hospitalization, Other)
  Sender: FDA-Public Use
  Company Number: CA-MUNDIPHARMA RESEARCH LIMITED-CAN-2020-0012058

PATIENT
  Age: 47 Year
  Sex: Female

DRUGS (40)
  1. OXYCODONE HYDROCHLORIDE [Interacting]
     Active Substance: OXYCODONE HYDROCHLORIDE
     Indication: Product used for unknown indication
     Route: 065
  2. OXYCODONE HYDROCHLORIDE [Interacting]
     Active Substance: OXYCODONE HYDROCHLORIDE
     Dosage: UNK
     Route: 065
  3. MORPHINE SULFATE [Interacting]
     Active Substance: MORPHINE SULFATE
     Indication: Product used for unknown indication
     Dosage: 10 MG, UNK
     Route: 065
  4. MORPHINE SULFATE [Interacting]
     Active Substance: MORPHINE SULFATE
     Dosage: 10 MG, UNK
     Route: 065
  5. DILAUDID [Interacting]
     Active Substance: HYDROMORPHONE HYDROCHLORIDE
     Indication: Product used for unknown indication
     Dosage: UNK
     Route: 065
  6. DILAUDID [Interacting]
     Active Substance: HYDROMORPHONE HYDROCHLORIDE
     Dosage: UNK
     Route: 065
  7. DILAUDID [Interacting]
     Active Substance: HYDROMORPHONE HYDROCHLORIDE
     Dosage: UNK, PRN
     Route: 065
  8. OXYCODONE [Interacting]
     Active Substance: OXYCODONE
     Indication: Product used for unknown indication
     Dosage: UNK
     Route: 065
  9. OXYCODONE [Interacting]
     Active Substance: OXYCODONE
     Dosage: UNK
     Route: 065
  10. OXYCONTIN [Interacting]
     Active Substance: OXYCODONE HYDROCHLORIDE
     Indication: Product used for unknown indication
     Dosage: UNK
     Route: 065
  11. OXYCONTIN [Interacting]
     Active Substance: OXYCODONE HYDROCHLORIDE
     Dosage: UNK
     Route: 065
  12. AMITRIPTYLINE [Interacting]
     Active Substance: AMITRIPTYLINE
     Indication: Product used for unknown indication
     Dosage: UNK
     Route: 065
  13. AMITRIPTYLINE [Interacting]
     Active Substance: AMITRIPTYLINE
     Dosage: UNK
     Route: 065
  14. AMITRIPTYLINE [Interacting]
     Active Substance: AMITRIPTYLINE
     Dosage: UNK
     Route: 065
  15. AMITRIPTYLINE [Interacting]
     Active Substance: AMITRIPTYLINE
     Dosage: UNK
     Route: 065
  16. AMITRIPTYLINE [Interacting]
     Active Substance: AMITRIPTYLINE
     Dosage: UNK
     Route: 065
  17. CYCLOBENZAPRINE [Interacting]
     Active Substance: CYCLOBENZAPRINE
     Indication: Product used for unknown indication
     Dosage: UNK
     Route: 065
  18. CYCLOBENZAPRINE [Interacting]
     Active Substance: CYCLOBENZAPRINE
     Dosage: 40 MG, DAILY (1 EVERY 1 DAYS)
     Route: 065
  19. CYCLOBENZAPRINE [Interacting]
     Active Substance: CYCLOBENZAPRINE
     Dosage: 40 MG, DAILY (1 EVERY 1 DAYS)
     Route: 065
  20. CYCLOBENZAPRINE HYDROCHLORIDE [Interacting]
     Active Substance: CYCLOBENZAPRINE HYDROCHLORIDE
     Indication: Product used for unknown indication
     Route: 065
  21. CYCLOBENZAPRINE HYDROCHLORIDE [Interacting]
     Active Substance: CYCLOBENZAPRINE HYDROCHLORIDE
     Dosage: 40 MG, DAILY (1 EVERY 1 DAYS)
     Route: 065
  22. ENDOCET [Interacting]
     Active Substance: ACETAMINOPHEN\OXYCODONE HYDROCHLORIDE
     Indication: Product used for unknown indication
     Route: 065
  23. ENDOCET [Interacting]
     Active Substance: ACETAMINOPHEN\OXYCODONE HYDROCHLORIDE
     Dosage: UNK
     Route: 065
  24. ENDOCET [Interacting]
     Active Substance: ACETAMINOPHEN\OXYCODONE HYDROCHLORIDE
     Dosage: UNK
     Route: 065
  25. ENDOCET [Interacting]
     Active Substance: ACETAMINOPHEN\OXYCODONE HYDROCHLORIDE
     Dosage: UNK
     Route: 065
  26. ALCOHOL [Interacting]
     Active Substance: ALCOHOL
     Indication: Product used for unknown indication
     Dosage: UNK
     Route: 065
  27. ALCOHOL [Interacting]
     Active Substance: ALCOHOL
     Dosage: UNK
     Route: 065
  28. ALCOHOL [Interacting]
     Active Substance: ALCOHOL
     Dosage: UNK
     Route: 065
  29. FENTANYL [Interacting]
     Active Substance: FENTANYL
     Indication: Product used for unknown indication
     Dosage: UNK
     Route: 062
  30. FENTANYL [Interacting]
     Active Substance: FENTANYL
     Dosage: UNK
     Route: 062
  31. FENTANYL [Interacting]
     Active Substance: FENTANYL
     Dosage: UNK
     Route: 065
  32. FENTANYL [Interacting]
     Active Substance: FENTANYL
     Dosage: UNK
     Route: 065
  33. NAPROXEN [Interacting]
     Active Substance: NAPROXEN
     Indication: Product used for unknown indication
     Dosage: UNK
     Route: 065
  34. NAPROXEN [Interacting]
     Active Substance: NAPROXEN
     Dosage: UNK
     Route: 065
  35. NICOTINE [Interacting]
     Active Substance: NICOTINE
     Indication: Smoking cessation therapy
     Dosage: UNK
     Route: 065
  36. NICOTINE [Interacting]
     Active Substance: NICOTINE
     Dosage: UNK
     Route: 065
  37. NICOTINE [Interacting]
     Active Substance: NICOTINE
     Dosage: UNK
     Route: 065
  38. OXYCODONE AND ACETAMINOPHEN [Suspect]
     Active Substance: ACETAMINOPHEN\OXYCODONE HYDROCHLORIDE
     Indication: Product used for unknown indication
     Dosage: UNK
     Route: 065
  39. OXYCODONE AND ACETAMINOPHEN [Suspect]
     Active Substance: ACETAMINOPHEN\OXYCODONE HYDROCHLORIDE
     Dosage: UNK
     Route: 065
  40. NAPROXEN SODIUM [Interacting]
     Active Substance: NAPROXEN SODIUM
     Indication: Product used for unknown indication
     Dosage: UNK
     Route: 065

REACTIONS (25)
  - Overdose [Fatal]
  - Anxiety [Fatal]
  - Cardiac death [Fatal]
  - Depressed mood [Fatal]
  - Dizziness [Fatal]
  - Drug interaction [Fatal]
  - Drug tolerance [Fatal]
  - Dysarthria [Fatal]
  - Emotional disorder [Fatal]
  - Functional gastrointestinal disorder [Fatal]
  - Gait disturbance [Fatal]
  - Gastric dilatation [Fatal]
  - Infection [Fatal]
  - Intentional product misuse [Fatal]
  - Loss of consciousness [Fatal]
  - Malaise [Fatal]
  - Mental impairment [Fatal]
  - Myocardial infarction [Fatal]
  - Nausea [Fatal]
  - Paraesthesia [Fatal]
  - Pulmonary oedema [Fatal]
  - Respiratory arrest [Fatal]
  - Sedation [Fatal]
  - Somnolence [Fatal]
  - Tachycardia [Fatal]
